FAERS Safety Report 19370213 (Version 3)
Quarter: 2021Q3

REPORT INFORMATION
  Report Type: Report from Study
  Country: FR (occurrence: FR)
  Receive Date: 20210604
  Receipt Date: 20210706
  Transmission Date: 20211014
  Serious: Yes (Hospitalization)
  Sender: FDA-Public Use
  Company Number: FR-BRISTOL-MYERS SQUIBB COMPANY-BMS-2021-015507

PATIENT
  Age: 40 Year
  Sex: Male
  Weight: 71 kg

DRUGS (3)
  1. LINRODOSTAT MESYLATE [Suspect]
     Active Substance: LINRODOSTAT MESYLATE
     Indication: HEAD AND NECK CANCER
     Dosage: 100 MILLIGRAM
     Route: 065
     Dates: start: 20210112
  2. RELATLIMAB [Suspect]
     Active Substance: RELATLIMAB
     Indication: HEAD AND NECK CANCER
     Dosage: 160 MILLIGRAM
     Route: 042
     Dates: start: 20210112
  3. NIVOLUMAB [Suspect]
     Active Substance: NIVOLUMAB
     Indication: HEAD AND NECK CANCER
     Dosage: 480 MILLIGRAM
     Route: 042
     Dates: start: 20210112

REACTIONS (1)
  - Troponin increased [Recovered/Resolved]

NARRATIVE: CASE EVENT DATE: 20210209
